FAERS Safety Report 4970326-1 (Version None)
Quarter: 2006Q2

REPORT INFORMATION
  Report Type: 
  Country: None (occurrence: None)
  Receive Date: 20060331
  Receipt Date: 20050609
  Transmission Date: 20061013
  Serious: Yes (Hospitalization)
  Sender: FDA-Public Use
  Company Number: 2005BH000207

PATIENT
  Age: 46 Year
  Sex: Male
  Weight: 63 kg

DRUGS (1)
  1. IVEEGAM [Suspect]
     Indication: IMMUNODEFICIENCY
     Dosage: 15 GM; AS NEEDED; IV
     Route: 042
     Dates: start: 20050603, end: 20050603

REACTIONS (4)
  - CHILLS [None]
  - FEBRILE CONVULSION [None]
  - INFUSION RELATED REACTION [None]
  - PHARMACEUTICAL PRODUCT COMPLAINT [None]
